FAERS Safety Report 4946947-9 (Version None)
Quarter: 2006Q1

REPORT INFORMATION
  Report Type: 
  Country: None (occurrence: None)
  Receive Date: 20060317
  Receipt Date: 20060222
  Transmission Date: 20060701
  Serious: Yes (Other)
  Sender: FDA-Public Use
  Company Number: JP-ROCHE-438129

PATIENT
  Age: 88 Year
  Sex: Male
  Weight: 61 kg

DRUGS (7)
  1. TAMIFLU [Suspect]
     Dosage: DOSE FORM REPORTED AS ORAL FORMULATION
     Route: 048
     Dates: start: 20060221, end: 20060222
  2. GLIMICRON [Concomitant]
     Route: 048
     Dates: start: 20031202
  3. BUFFERIN [Concomitant]
     Route: 048
     Dates: start: 20040928
  4. CYANOCOBALAMIN [Concomitant]
     Route: 048
     Dates: start: 20050804
  5. PL [Concomitant]
     Route: 048
     Dates: start: 20060221
  6. GEFANIL [Concomitant]
     Route: 048
     Dates: start: 20060221
  7. VOLTAREN [Concomitant]
     Route: 054
     Dates: start: 20060221, end: 20060222

REACTIONS (6)
  - BLOOD GLUCOSE INCREASED [None]
  - DEHYDRATION [None]
  - INCORRECT ROUTE OF DRUG ADMINISTRATION [None]
  - LOSS OF CONSCIOUSNESS [None]
  - SYNCOPE [None]
  - UNRESPONSIVE TO VERBAL STIMULI [None]
